FAERS Safety Report 17425267 (Version 1)
Quarter: 2020Q1

REPORT INFORMATION
  Report Type: Spontaneous
  Country: IT (occurrence: IT)
  Receive Date: 20200218
  Receipt Date: 20200218
  Transmission Date: 20200409
  Serious: Yes (Other)
  Sender: FDA-Public Use
  Company Number: IT-AMGEN-ITASP2020024446

PATIENT

DRUGS (7)
  1. XELODA [Concomitant]
     Active Substance: CAPECITABINE
     Indication: INVASIVE BREAST CARCINOMA
     Dosage: 625 MILLIGRAM/SQ. METER, BID, ON DAYS 5-18, EVERY 4 WEEKS
     Route: 048
  2. PEGFILGRASTIM [Suspect]
     Active Substance: PEGFILGRASTIM
     Indication: PROPHYLAXIS
     Dosage: 6 MILLIGRAM, AFTER CHEMO
     Route: 058
  3. EPIRUBICIN [Concomitant]
     Active Substance: EPIRUBICIN
     Indication: INVASIVE BREAST CARCINOMA
     Dosage: 90 MILLIGRAM/SQ. METER, Q2WK
     Route: 042
  4. CYCLOPHOSPHAMIDE. [Concomitant]
     Active Substance: CYCLOPHOSPHAMIDE
     Indication: INVASIVE BREAST CARCINOMA
     Dosage: 600 MILLIGRAM/SQ. METER, Q2WK
     Route: 042
  5. TAXOTERE [Concomitant]
     Active Substance: DOCETAXEL
     Indication: INVASIVE BREAST CARCINOMA
     Dosage: 36 MILLIGRAM/SQ. METER, 1-H INFISION (ON DAYS 1, 8, 15)
     Route: 065
  6. DIPHENHYDRAMINE. [Concomitant]
     Active Substance: DIPHENHYDRAMINE
     Dosage: 50 MILLIGRAM (1 H BEFORE DOCTAXEL)
     Route: 030
  7. PREDNISONE. [Concomitant]
     Active Substance: PREDNISONE
     Dosage: 50 MILLIGRAM (AT 12 AND 1 HOUR BEFORE DOCETAXEL AND 12 H AFTER DOCETAXEL)
     Route: 048

REACTIONS (13)
  - Thrombocytopenia [Unknown]
  - Fatigue [Unknown]
  - AST/ALT ratio abnormal [Unknown]
  - Product storage error [Unknown]
  - Nausea [Unknown]
  - Vomiting [Unknown]
  - Mucosal inflammation [Unknown]
  - Neutropenia [Unknown]
  - Palmar-plantar erythrodysaesthesia syndrome [Unknown]
  - Diarrhoea [Unknown]
  - Nail disorder [Unknown]
  - Leukopenia [Unknown]
  - Anaemia [Unknown]
